FAERS Safety Report 15198193 (Version 1)
Quarter: 2018Q3

REPORT INFORMATION
  Report Type: Spontaneous
  Country: US (occurrence: US)
  Receive Date: 20180725
  Receipt Date: 20180725
  Transmission Date: 20181010
  Serious: Yes (Other)
  Sender: FDA-Public Use
  Company Number: US-GILEAD-2018-0351224

PATIENT
  Age: 54 Year
  Sex: Female

DRUGS (2)
  1. HARVONI [Suspect]
     Active Substance: LEDIPASVIR\SOFOSBUVIR
     Indication: HEPATITIS C
     Dosage: UNK
     Route: 065
     Dates: start: 2015
  2. KLONOPIN [Concomitant]
     Active Substance: CLONAZEPAM
     Dosage: UNK
     Dates: end: 2015

REACTIONS (8)
  - Road traffic accident [Unknown]
  - Abdominal pain upper [Unknown]
  - Drug ineffective [Unknown]
  - Cataract [Unknown]
  - Glycosylated haemoglobin increased [Unknown]
  - Hepatitis C [Unknown]
  - False positive investigation result [Unknown]
  - Thyroid cyst [Not Recovered/Not Resolved]

NARRATIVE: CASE EVENT DATE: 2017
